FAERS Safety Report 18380596 (Version 1)
Quarter: 2020Q4

REPORT INFORMATION
  Report Type: Report from Study
  Country: US (occurrence: US)
  Receive Date: 20201014
  Receipt Date: 20201014
  Transmission Date: 20210114
  Serious: Yes (Hospitalization)
  Sender: FDA-Public Use
  Company Number: US-GILEAD-2020-0498813

PATIENT
  Age: 66 Year
  Sex: Female

DRUGS (4)
  1. UPTRAVI [Concomitant]
     Active Substance: SELEXIPAG
  2. AMBRISENTAN [Suspect]
     Active Substance: AMBRISENTAN
     Indication: PULMONARY ARTERIAL HYPERTENSION
     Dosage: 10 MG, QD
     Route: 065
     Dates: start: 20200123
  3. ADEMPAS [Concomitant]
     Active Substance: RIOCIGUAT
  4. ORENCIA [Concomitant]
     Active Substance: ABATACEPT

REACTIONS (6)
  - Asthenia [Unknown]
  - Vomiting [Not Recovered/Not Resolved]
  - Bed rest [Not Recovered/Not Resolved]
  - Diarrhoea [Unknown]
  - Illness [Not Recovered/Not Resolved]
  - Hypotension [Unknown]
